FAERS Safety Report 16966413 (Version 1)
Quarter: 2019Q4

REPORT INFORMATION
  Report Type: Spontaneous
  Country: US (occurrence: US)
  Receive Date: 20191028
  Receipt Date: 20191028
  Transmission Date: 20200122
  Serious: Yes (Death, Hospitalization)
  Sender: FDA-Public Use
  Company Number: US-BAYER-2019-190497

PATIENT
  Age: 66 Year
  Sex: Male

DRUGS (1)
  1. ADEMPAS [Suspect]
     Active Substance: RIOCIGUAT
     Indication: PULMONARY HYPERTENSION
     Dosage: 1 MG, TID
     Route: 048
     Dates: start: 20171004, end: 20191003

REACTIONS (10)
  - Oliguria [None]
  - Hypotension [None]
  - Fluid overload [None]
  - Tachycardia [None]
  - Disease progression [Fatal]
  - Sepsis [None]
  - Right ventricular failure [None]
  - Pain in extremity [None]
  - Renal impairment [None]
  - Cellulitis [None]

NARRATIVE: CASE EVENT DATE: 2019
